FAERS Safety Report 5880229-6 (Version None)
Quarter: 2008Q3

REPORT INFORMATION
  Report Type: 
  Country: None (occurrence: None)
  Receive Date: 20080912
  Receipt Date: 20080902
  Transmission Date: 20090109
  Serious: Yes (Hospitalization)
  Sender: FDA-Public Use
  Company Number: SE-PFIZER INC-2008074245

PATIENT
  Age: 18 Year
  Sex: Male

DRUGS (4)
  1. PREDNISOLONE [Suspect]
     Indication: COLITIS ULCERATIVE
     Dosage: DAILY DOSE:40MG
     Route: 048
  2. PREDNISOLONE [Suspect]
     Dosage: DAILY DOSE:10MG
     Route: 048
  3. AZATHIOPRINE [Concomitant]
     Indication: COLITIS ULCERATIVE
     Dosage: DAILY DOSE:1MG/KG
  4. AZATHIOPRINE [Concomitant]
     Dosage: DAILY DOSE:2MG/KG

REACTIONS (2)
  - CEREBRAL VENOUS THROMBOSIS [None]
  - PERITONSILLITIS [None]
